FAERS Safety Report 18024641 (Version 2)
Quarter: 2020Q3

REPORT INFORMATION
  Report Type: Spontaneous
  Country: DE (occurrence: DE)
  Receive Date: 20200714
  Receipt Date: 20200820
  Transmission Date: 20201103
  Serious: Yes (Other)
  Sender: FDA-Public Use
  Company Number: DE-AUROBINDO-AUR-APL-2020-034824

PATIENT
  Sex: Female

DRUGS (1)
  1. LAMOTRIGINE AUROBINDO TABLETS 200MG [Suspect]
     Active Substance: LAMOTRIGINE
     Indication: PRODUCT USED FOR UNKNOWN INDICATION
     Dosage: UNK
     Route: 048

REACTIONS (3)
  - Foreign body in throat [Unknown]
  - Dysphagia [Unknown]
  - Product taste abnormal [Unknown]
